FAERS Safety Report 13495406 (Version 2)
Quarter: 2017Q2

REPORT INFORMATION
  Report Type: Spontaneous
  Country: AT (occurrence: AT)
  Receive Date: 20170428
  Receipt Date: 20170502
  Transmission Date: 20170830
  Serious: Yes (Hospitalization)
  Sender: FDA-Public Use
  Company Number: PHHY2017AT061070

PATIENT
  Age: 57 Year
  Sex: Female

DRUGS (3)
  1. COSENTYX [Suspect]
     Active Substance: SECUKINUMAB
     Indication: SPONDYLITIS
     Dosage: 300 MG, QMO (4 WEEKS)
     Route: 058
  2. EBETREXAT [Suspect]
     Active Substance: METHOTREXATE SODIUM
     Indication: SPONDYLITIS
     Dosage: 25 MG, QW
     Route: 065
  3. APREDNISLON [Suspect]
     Active Substance: PREDNISOLONE
     Indication: SPONDYLITIS
     Dosage: 5 MG, QD (IN ONE DAY)
     Route: 065

REACTIONS (1)
  - Periarthritis [Not Recovered/Not Resolved]

NARRATIVE: CASE EVENT DATE: 20170301
